FAERS Safety Report 20507240 (Version 1)
Quarter: 2022Q1

REPORT INFORMATION
  Report Type: Spontaneous
  Country: US (occurrence: US)
  Receive Date: 20220223
  Receipt Date: 20220223
  Transmission Date: 20220423
  Serious: Yes (Life-Threatening, Other)
  Sender: FDA-Public Use
  Company Number: US-BRACCO-2021US03456

PATIENT
  Age: 88 Year
  Sex: Female

DRUGS (6)
  1. ISOVUE 370 [Suspect]
     Active Substance: IOPAMIDOL
     Indication: Percutaneous coronary intervention
     Dosage: UNK UNK, SINGLE
     Dates: start: 20210514, end: 20210514
  2. FENTANYL [Concomitant]
     Active Substance: FENTANYL
  3. VERSED [Concomitant]
     Active Substance: MIDAZOLAM HYDROCHLORIDE
  4. HEPARIN [Concomitant]
     Active Substance: HEPARIN SODIUM
     Dosage: UNK
  5. NICARDIPINE [Concomitant]
     Active Substance: NICARDIPINE
  6. NITROGLYCERIN [Concomitant]
     Active Substance: NITROGLYCERIN

REACTIONS (2)
  - Ventricular fibrillation [Recovered/Resolved]
  - Sinus bradycardia [Recovered/Resolved]

NARRATIVE: CASE EVENT DATE: 20210514
